FAERS Safety Report 21977867 (Version 1)
Quarter: 2023Q1

REPORT INFORMATION
  Report Type: Spontaneous
  Country: US (occurrence: US)
  Receive Date: 20230210
  Receipt Date: 20230210
  Transmission Date: 20230418
  Serious: Yes (Hospitalization)
  Sender: FDA-Public Use
  Company Number: US-BIOVITRUM-2022US14276

PATIENT
  Sex: Female

DRUGS (2)
  1. SYNAGIS [Suspect]
     Active Substance: PALIVIZUMAB
     Indication: Premature baby
     Dates: start: 20220211
  2. SYNAGIS [Suspect]
     Active Substance: PALIVIZUMAB
     Indication: Intraventricular haemorrhage neonatal
     Dosage: 50MG/0.5ML, 100MG/ML
     Dates: start: 202212

REACTIONS (1)
  - Illness [Unknown]
